FAERS Safety Report 20201265 (Version 1)
Quarter: 2021Q4

REPORT INFORMATION
  Report Type: Spontaneous
  Country: CN (occurrence: CN)
  Receive Date: 20211217
  Receipt Date: 20211217
  Transmission Date: 20220304
  Serious: Yes (Other)
  Sender: FDA-Public Use
  Company Number: CN-PFIZER INC-202101741326

PATIENT
  Age: 4 Year
  Sex: Female
  Weight: 18 kg

DRUGS (3)
  1. METHYLPREDNISOLONE SODIUM SUCCINATE [Suspect]
     Active Substance: METHYLPREDNISOLONE SODIUM SUCCINATE
     Indication: Bronchitis
     Dosage: 20 MG, 1X/DAY
     Route: 041
     Dates: start: 20211126, end: 20211128
  2. POTASSIUM SODIUM 14-DEOXY-11,12-DEHYDROANDROGRAPHOLIDE SUCCINATE [Suspect]
     Active Substance: POTASSIUM SODIUM 14-DEOXY-11,12-DEHYDROANDROGRAPHOLIDE SUCCINATE
     Indication: Bronchitis
     Dosage: 160 MG, 1X/DAY
     Route: 041
     Dates: start: 20211126, end: 20211128
  3. DEXTROSE [Concomitant]
     Active Substance: DEXTROSE
     Indication: Vehicle solution use
     Dosage: 100 ML, 1X/DAY
     Route: 041
     Dates: start: 20211126, end: 20211128

REACTIONS (1)
  - Pyrexia [Recovered/Resolved]

NARRATIVE: CASE EVENT DATE: 20211126
